FAERS Safety Report 6725937-X (Version None)
Quarter: 2010Q2

REPORT INFORMATION
  Report Type: 
  Country: None (occurrence: None)
  Receive Date: 20100514
  Receipt Date: 20100511
  Transmission Date: 20101027
  Serious: Yes (Death)
  Sender: FDA-Public Use
  Company Number: JP-JNJFOC-20081103903

PATIENT
  Sex: Male
  Weight: 46 kg

DRUGS (17)
  1. ITRIZOLE [Suspect]
     Indication: RESPIRATORY MONILIASIS
     Route: 048
  2. ITRIZOLE [Suspect]
     Route: 048
  3. ITRIZOLE [Suspect]
     Route: 041
  4. MICONAZOLE NITRATE [Concomitant]
     Indication: PULMONARY MYCOSIS
     Route: 048
  5. MAXIPIME [Concomitant]
     Indication: PNEUMONIA BACTERIAL
     Route: 042
  6. OMEPRAL [Concomitant]
     Indication: GASTRIC ULCER HAEMORRHAGE
     Route: 042
  7. ANAFRANIL [Concomitant]
     Indication: DEPRESSION
     Route: 042
  8. LASTET [Concomitant]
     Indication: ACUTE MYELOID LEUKAEMIA
     Route: 042
  9. LASTET [Concomitant]
     Route: 042
  10. KYTRIL [Concomitant]
     Indication: PROPHYLAXIS
     Route: 042
  11. KYTRIL [Concomitant]
     Route: 042
  12. KN -1 [Concomitant]
     Indication: PROPHYLAXIS
     Route: 042
  13. MEYLON [Concomitant]
     Indication: PROPHYLAXIS
     Route: 042
  14. KAYTWO N [Concomitant]
     Indication: VITAMIN K DEFICIENCY
     Route: 042
  15. PREDONINE [Concomitant]
     Indication: ACUTE MYELOID LEUKAEMIA
     Route: 042
  16. NEO-MINOPHAGEN C [Concomitant]
     Indication: LIVER DISORDER
     Route: 042
  17. LASIX [Concomitant]
     Indication: FLUID RETENTION
     Route: 042

REACTIONS (6)
  - ACUTE MYELOID LEUKAEMIA [None]
  - DISEASE PROGRESSION [None]
  - FLUID RETENTION [None]
  - INSOMNIA [None]
  - LIVER DISORDER [None]
  - VITAMIN K DEFICIENCY [None]
